FAERS Safety Report 15575656 (Version 2)
Quarter: 2018Q4

REPORT INFORMATION
  Report Type: Spontaneous
  Country: FR (occurrence: FR)
  Receive Date: 20181101
  Receipt Date: 20181109
  Transmission Date: 20190205
  Serious: Yes (Other)
  Sender: FDA-Public Use
  Company Number: FR-MYLANLABS-2018M1079563

PATIENT
  Age: 67 Year
  Sex: Male
  Weight: 93 kg

DRUGS (2)
  1. BUPIVACAINE MYLAN 20 MG/4 ML, INTRARACHIDIENNE [Suspect]
     Active Substance: BUPIVACAINE
     Indication: SPINAL ANAESTHESIA
     Dosage: UNK
     Dates: start: 20181011
  2. BUPIVACAINE MYLAN 20 MG/4 ML, INTRARACHIDIENNE [Suspect]
     Active Substance: BUPIVACAINE
     Dosage: UNK
     Dates: end: 201810

REACTIONS (1)
  - Drug ineffective [Not Recovered/Not Resolved]

NARRATIVE: CASE EVENT DATE: 20181011
